FAERS Safety Report 16048989 (Version 3)
Quarter: 2019Q4

REPORT INFORMATION
  Report Type: Spontaneous
  Country: US (occurrence: US)
  Receive Date: 20190307
  Receipt Date: 20191203
  Transmission Date: 20200122
  Serious: Yes (Hospitalization, Disabling, Other)
  Sender: FDA-Public Use
  Company Number: US-ASTRAZENECA-2019SE10815

PATIENT
  Age: 50 Year
  Sex: Male

DRUGS (40)
  1. PROTONIX [Suspect]
     Active Substance: PANTOPRAZOLE SODIUM
     Indication: BARRETT^S OESOPHAGUS
     Route: 065
     Dates: start: 201503, end: 2017
  2. PREDNISONE. [Concomitant]
     Active Substance: PREDNISONE
  3. BACTRIM [Concomitant]
     Active Substance: SULFAMETHOXAZOLE\TRIMETHOPRIM
  4. METOPROLOL SUCCINATE. [Concomitant]
     Active Substance: METOPROLOL SUCCINATE
  5. VASOTEC [Concomitant]
     Active Substance: ENALAPRIL MALEATE
  6. FOSAMAX [Concomitant]
     Active Substance: ALENDRONATE SODIUM
  7. LANTUS [Concomitant]
     Active Substance: INSULIN GLARGINE
  8. PRILOSEC OTC [Suspect]
     Active Substance: OMEPRAZOLE MAGNESIUM
     Indication: GASTROOESOPHAGEAL REFLUX DISEASE
     Route: 048
     Dates: start: 2003, end: 2009
  9. HUMALOG [Concomitant]
     Active Substance: INSULIN LISPRO
  10. COREG [Concomitant]
     Active Substance: CARVEDILOL
  11. CLONIDINE. [Concomitant]
     Active Substance: CLONIDINE
  12. PROTONIX [Suspect]
     Active Substance: PANTOPRAZOLE SODIUM
     Indication: ABDOMINAL PAIN UPPER
     Route: 065
     Dates: start: 201503, end: 2017
  13. PROTONIX [Suspect]
     Active Substance: PANTOPRAZOLE SODIUM
     Indication: ABDOMINAL PAIN UPPER
     Dosage: GENERIC
     Route: 065
     Dates: start: 2015
  14. CARVEDILOL. [Concomitant]
     Active Substance: CARVEDILOL
  15. INSULIN [Concomitant]
     Active Substance: INSULIN NOS
  16. NOVOLIN [Concomitant]
     Active Substance: INSULIN HUMAN
  17. HECTOROL [Concomitant]
     Active Substance: DOXERCALCIFEROL
  18. ZEMPLAR [Concomitant]
     Active Substance: PARICALCITOL
  19. RENAGEL [Concomitant]
     Active Substance: SEVELAMER HYDROCHLORIDE
  20. NEXIUM 24HR [Suspect]
     Active Substance: ESOMEPRAZOLE MAGNESIUM
     Indication: GASTROOESOPHAGEAL REFLUX DISEASE
     Route: 048
     Dates: start: 20140328, end: 201503
  21. FUROSEMIDE. [Concomitant]
     Active Substance: FUROSEMIDE
  22. LOSARTAN. [Concomitant]
     Active Substance: LOSARTAN
  23. RENAVITE [Concomitant]
     Active Substance: ASCORBIC ACID\BIOTIN\CALCIUM PANTOTHENATE\CYANOCOBALAMIN\FOLIC ACID\NIACINAMIDE\PYRIDOXINE HYDROCHLORIDE\RIBOFLAVIN\THIAMINE MONONITRATE
  24. CLONIDINE. [Concomitant]
     Active Substance: CLONIDINE
  25. PREVACID 24 HR [Suspect]
     Active Substance: LANSOPRAZOLE
     Indication: GASTROOESOPHAGEAL REFLUX DISEASE
     Route: 065
     Dates: start: 2009, end: 2014
  26. PROTONIX [Suspect]
     Active Substance: PANTOPRAZOLE SODIUM
     Indication: BARRETT^S OESOPHAGUS
     Dosage: GENERIC
     Route: 065
     Dates: start: 2015
  27. PROCARDIA [Concomitant]
     Active Substance: NIFEDIPINE
     Indication: HYPERTENSION
     Dates: start: 2009, end: 2019
  28. CRESTOR [Concomitant]
     Active Substance: ROSUVASTATIN CALCIUM
  29. TAMULOSIN [Concomitant]
     Active Substance: TAMSULOSIN
  30. PEPCID [Concomitant]
     Active Substance: FAMOTIDINE
  31. HYDRALAZINE [Concomitant]
     Active Substance: HYDRALAZINE HYDROCHLORIDE
  32. LISINOPRIL. [Concomitant]
     Active Substance: LISINOPRIL
  33. CARDENE [Concomitant]
     Active Substance: NICARDIPINE HYDROCHLORIDE
  34. LABETALOL [Concomitant]
     Active Substance: LABETALOL\LABETALOL HYDROCHLORIDE
  35. PRILOSEC [Suspect]
     Active Substance: OMEPRAZOLE MAGNESIUM
     Route: 048
  36. VITAMIN D [Concomitant]
     Active Substance: VITAMIN D NOS
  37. TYLENOL [Concomitant]
     Active Substance: ACETAMINOPHEN
  38. NIFEDICAL XL [Concomitant]
     Active Substance: NIFEDIPINE
  39. GENTAMYCIN [Concomitant]
     Active Substance: GENTAMICIN
  40. EPOGEN [Concomitant]
     Active Substance: ERYTHROPOIETIN

REACTIONS (8)
  - Renal failure [Unknown]
  - Acute kidney injury [Unknown]
  - Renal injury [Unknown]
  - End stage renal disease [Unknown]
  - Hyperparathyroidism secondary [Unknown]
  - Rebound acid hypersecretion [Unknown]
  - Chronic kidney disease [Not Recovered/Not Resolved]
  - Nephrogenic anaemia [Unknown]

NARRATIVE: CASE EVENT DATE: 2009
